FAERS Safety Report 8341467-6 (Version None)
Quarter: 2012Q2

REPORT INFORMATION
  Report Type: 
  Country: None (occurrence: None)
  Receive Date: 20120507
  Receipt Date: 20120429
  Transmission Date: 20120825
  Serious: Yes (Death, Other)
  Sender: FDA-Public Use
  Company Number: GB-MERCK-1205USA00361

PATIENT
  Age: 89 Year
  Sex: Male

DRUGS (1)
  1. COSOPT [Suspect]
     Indication: GLAUCOMA
     Route: 047

REACTIONS (3)
  - DEATH [None]
  - OVERDOSE [None]
  - PRODUCT QUALITY ISSUE [None]
